FAERS Safety Report 17082632 (Version 2)
Quarter: 2020Q1

REPORT INFORMATION
  Report Type: Spontaneous
  Country: US (occurrence: US)
  Receive Date: 20191127
  Receipt Date: 20200116
  Transmission Date: 20200409
  Serious: No
  Sender: FDA-Public Use
  Company Number: US-ELI_LILLY_AND_COMPANY-US201911002273

PATIENT
  Age: 61 Year
  Sex: Female

DRUGS (4)
  1. FIORICET [Concomitant]
     Active Substance: ACETAMINOPHEN\BUTALBITAL\CAFFEINE
     Indication: MIGRAINE
     Dosage: UNK, UNKNOWN
     Route: 065
  2. DIAZEPAM. [Concomitant]
     Active Substance: DIAZEPAM
     Indication: MIGRAINE
     Dosage: UNK, UNKNOWN, DURING THE DAY
     Route: 065
  3. EMGALITY [Suspect]
     Active Substance: GALCANEZUMAB-GNLM
     Indication: MIGRAINE
     Dosage: 120 MG, UNKNOWN
     Route: 058
     Dates: start: 201909
  4. TEMAZEPAM. [Concomitant]
     Active Substance: TEMAZEPAM
     Indication: MIGRAINE
     Dosage: UNK, UNKNOWN, AT NIGHT
     Route: 065

REACTIONS (2)
  - Headache [Not Recovered/Not Resolved]
  - Therapeutic response shortened [Unknown]
